FAERS Safety Report 4600740-5 (Version None)
Quarter: 2005Q1

REPORT INFORMATION
  Report Type: 
  Country: None (occurrence: None)
  Receive Date: 20050307
  Receipt Date: 20050221
  Transmission Date: 20050727
  Serious: Yes (Hospitalization, Disabling)
  Sender: FDA-Public Use
  Company Number: CZ-MERCK-0503CZE00001

PATIENT
  Age: 59 Year
  Sex: Male

DRUGS (1)
  1. VIOXX [Suspect]
     Indication: MYOSITIS
     Route: 048
     Dates: start: 20020501, end: 20041001

REACTIONS (1)
  - ACUTE MYOCARDIAL INFARCTION [None]
